FAERS Safety Report 9097458 (Version 2)
Quarter: 2013Q1

REPORT INFORMATION
  Report Type: Spontaneous
  Country: US (occurrence: US)
  Receive Date: 20130212
  Receipt Date: 20130225
  Transmission Date: 20140127
  Serious: Yes (Hospitalization, Other)
  Sender: FDA-Public Use
  Company Number: US-009507513-0510USA03615

PATIENT
  Sex: Female
  Weight: 79.38 kg

DRUGS (14)
  1. VIOXX [Suspect]
     Indication: OSTEOARTHRITIS
     Dosage: 25-50
     Route: 048
     Dates: start: 200003, end: 200006
  2. VIOXX [Suspect]
     Indication: PAIN
     Dosage: UNK
     Route: 048
     Dates: start: 200009, end: 200409
  3. CELEBREX [Concomitant]
  4. PERCOCET [Concomitant]
  5. PREVACID [Concomitant]
     Dosage: 30 MG, BID
  6. ASPIRIN [Concomitant]
     Dosage: 325 MG, QD
  7. MK-9359 [Concomitant]
  8. ZIAC [Concomitant]
     Dosage: 25-50
  9. DURICEF [Concomitant]
  10. ACCURETIC [Concomitant]
     Dosage: 12.5/20
     Route: 048
  11. THEO-DUR [Concomitant]
     Dosage: 200 MG, TID
     Route: 048
  12. AMBIEN [Concomitant]
     Dosage: 10 MG, PRN
     Route: 048
  13. VICODIN [Concomitant]
     Dates: start: 20040217
  14. PNEUMOTUSSIN [Concomitant]
     Dosage: 1-2
     Route: 048

REACTIONS (102)
  - Transient ischaemic attack [Unknown]
  - Complicated migraine [Unknown]
  - Osteoarthritis [Unknown]
  - Osteoarthritis [Unknown]
  - Respiratory fume inhalation disorder [Recovering/Resolving]
  - Convulsion [Unknown]
  - Chest pain [Unknown]
  - Complex partial seizures [Unknown]
  - Simple partial seizures [Unknown]
  - Osteoarthritis [Unknown]
  - Ischaemic stroke [Unknown]
  - Cerebrovascular accident [Unknown]
  - Cardiac enzymes increased [Unknown]
  - Streptococcal bacteraemia [Recovering/Resolving]
  - Viraemia [Recovering/Resolving]
  - Cystocele [Unknown]
  - Rectocele [Unknown]
  - Enterocele [Unknown]
  - Uterine leiomyoma [Unknown]
  - Skin cancer [Unknown]
  - Stress urinary incontinence [Unknown]
  - Cerebrovascular disorder [Unknown]
  - Complicated migraine [Unknown]
  - Syncope [Unknown]
  - Leukopenia [Unknown]
  - Cerebrovascular disorder [Unknown]
  - Cerebrovascular disorder [Unknown]
  - Gallbladder disorder [Unknown]
  - Dysarthria [Unknown]
  - Pelvic pain [Unknown]
  - Joint adhesion [Unknown]
  - Intervertebral disc protrusion [Unknown]
  - Gastrooesophageal reflux disease [Unknown]
  - Abdominal pain upper [Unknown]
  - Transient ischaemic attack [Unknown]
  - Gastrooesophageal reflux disease [Unknown]
  - Pain in extremity [Unknown]
  - Hypokalaemia [Unknown]
  - Gastritis [Unknown]
  - Hiatus hernia [Unknown]
  - Nephrolithiasis [Unknown]
  - Arthropathy [Unknown]
  - Cardiac disorder [Unknown]
  - Thermal burn [Unknown]
  - Meningioma [Unknown]
  - Sinus tachycardia [Unknown]
  - White blood cell count increased [Unknown]
  - Blood glucose increased [Unknown]
  - Joint contracture [Unknown]
  - Diplopia [Unknown]
  - Vertebral artery occlusion [Unknown]
  - Weight decreased [Unknown]
  - Eye infection [Unknown]
  - Asthma [Unknown]
  - Ulcer [Unknown]
  - Urinary tract infection [Unknown]
  - Blood urine present [Unknown]
  - Muscular weakness [Unknown]
  - Memory impairment [Unknown]
  - Disturbance in attention [Unknown]
  - Coordination abnormal [Unknown]
  - Chronic respiratory disease [Not Recovered/Not Resolved]
  - Sinusitis [Unknown]
  - Rhinitis [Unknown]
  - Viral upper respiratory tract infection [Unknown]
  - Impaired gastric emptying [Unknown]
  - Sensory level abnormal [Unknown]
  - Tremor [Unknown]
  - Gastric antral vascular ectasia [Unknown]
  - Gastric polyps [Unknown]
  - Disturbance in attention [Unknown]
  - Syncope [Unknown]
  - Excoriation [Unknown]
  - Ataxia [Unknown]
  - Cerebral calcification [Unknown]
  - Carotid artery disease [Unknown]
  - Sleep apnoea syndrome [Unknown]
  - Nasal oedema [Unknown]
  - Periodic limb movement disorder [Unknown]
  - Chronic obstructive pulmonary disease [Not Recovered/Not Resolved]
  - Sleep disorder [Unknown]
  - Ventricular dysfunction [Unknown]
  - Pulmonary hypertension [Unknown]
  - Snoring [Unknown]
  - Restlessness [Unknown]
  - Sinusitis [Unknown]
  - Disorientation [Unknown]
  - Headache [Unknown]
  - Palpitations [Unknown]
  - Vertigo [Unknown]
  - Local swelling [Unknown]
  - Fatigue [Unknown]
  - Vision blurred [Unknown]
  - Dizziness [Unknown]
  - Local swelling [Unknown]
  - Nausea [Unknown]
  - Hypertension [Unknown]
  - Tinnitus [Unknown]
  - Dizziness [Unknown]
  - Nausea [Unknown]
  - Somnolence [Unknown]
  - Fatigue [Unknown]
